FAERS Safety Report 6138799-9 (Version None)
Quarter: 2009Q1

REPORT INFORMATION
  Report Type: 
  Country: None (occurrence: None)
  Receive Date: 20090331
  Receipt Date: 20090319
  Transmission Date: 20090719
  Serious: Yes (Other)
  Sender: FDA-Public Use
  Company Number: US-SANOFI-SYNTHELABO-A03200901221

PATIENT
  Age: 38 Year
  Sex: Male

DRUGS (3)
  1. SYNTHROID [Concomitant]
     Indication: DRUG USE FOR UNKNOWN INDICATION
     Dosage: UNK
     Route: 065
  2. XANAX [Concomitant]
     Indication: DRUG USE FOR UNKNOWN INDICATION
     Dosage: UNK
     Route: 065
  3. AMBIEN [Suspect]
     Indication: INSOMNIA
     Dosage: UNK
     Route: 048
     Dates: start: 20080901

REACTIONS (6)
  - AGGRESSION [None]
  - AMNESIA [None]
  - DYSARTHRIA [None]
  - DYSKINESIA [None]
  - DYSPHEMIA [None]
  - ROAD TRAFFIC ACCIDENT [None]
